FAERS Safety Report 9540549 (Version 1)
Quarter: 2013Q3

REPORT INFORMATION
  Report Type: Spontaneous
  Country: JP (occurrence: JP)
  Receive Date: 20130920
  Receipt Date: 20130920
  Transmission Date: 20140515
  Serious: Yes (Death, Other)
  Sender: FDA-Public Use
  Company Number: JP-009507513-1309JPN006552

PATIENT
  Age: 54 Year
  Sex: Male

DRUGS (1)
  1. GASTER [Suspect]
     Indication: PRODUCT USED FOR UNKNOWN INDICATION
     Dosage: 20 UNK, UNK
     Route: 048
     Dates: start: 201105, end: 201106

REACTIONS (2)
  - Infection [Fatal]
  - Agranulocytosis [Unknown]
